FAERS Safety Report 9142392 (Version 2)
Quarter: 2013Q4

REPORT INFORMATION
  Report Type: Report from Study
  Country: US (occurrence: US)
  Receive Date: 20130306
  Receipt Date: 20131101
  Transmission Date: 20140711
  Serious: Yes (Hospitalization)
  Sender: FDA-Public Use
  Company Number: US-BIOGENIDEC-2013BI020102

PATIENT
  Age: 71 Year
  Sex: Female

DRUGS (13)
  1. TYSABRI [Suspect]
     Indication: MULTIPLE SCLEROSIS
     Route: 042
     Dates: start: 20080331
  2. BACLOFEN [Concomitant]
     Indication: MUSCLE SPASTICITY
  3. METOPROLOL [Concomitant]
     Indication: HYPERTENSION
  4. ZANAFLEX [Concomitant]
     Indication: MUSCULOSKELETAL PAIN
  5. DITROPAN [Concomitant]
     Indication: HYPERTONIC BLADDER
  6. IRON SULFATE [Concomitant]
     Indication: MEDICAL DIET
  7. ASPIRIN [Concomitant]
     Indication: PROPHYLAXIS
  8. METFORMIN [Concomitant]
     Indication: TYPE 2 DIABETES MELLITUS
  9. PREVACID [Concomitant]
     Indication: GASTROOESOPHAGEAL REFLUX DISEASE
  10. LISINOPRIL [Concomitant]
     Indication: HYPERTENSION
  11. MELATONIN [Concomitant]
  12. ZOLOFT [Concomitant]
  13. CALCITRIOL [Concomitant]

REACTIONS (2)
  - Epistaxis [Recovered/Resolved]
  - Blood sodium decreased [Recovered/Resolved]
